FAERS Safety Report 6829743-7 (Version None)
Quarter: 2010Q3

REPORT INFORMATION
  Report Type: 
  Country: None (occurrence: None)
  Receive Date: 20100706
  Receipt Date: 20100524
  Transmission Date: 20110219
  Serious: Yes (Other)
  Sender: FDA-Public Use
  Company Number: 2010VX000824

PATIENT
  Age: 55 Year
  Sex: Male

DRUGS (16)
  1. FLUOROURACIL [Suspect]
     Indication: ADENOCARCINOMA
     Dosage: 400 MG/M**2;X1;IV; 2400 MG/**M2; QOW; IV, 500 MG/M**; IV
     Route: 042
  2. FLUOROURACIL [Suspect]
     Indication: ADENOCARCINOMA
     Dosage: 400 MG/M**2;X1;IV; 2400 MG/**M2; QOW; IV, 500 MG/M**; IV
     Route: 042
  3. FLUOROURACIL [Suspect]
     Indication: ADENOCARCINOMA
     Dosage: 400 MG/M**2;X1;IV; 2400 MG/**M2; QOW; IV, 500 MG/M**; IV
     Route: 042
  4. CAPECITABINE [Suspect]
     Indication: ADENOCARCINOMA
     Dosage: ; IV
     Route: 042
  5. OXALIPLATIN [Suspect]
     Indication: ADENOCARCINOMA
     Dosage: 85 MG/M** 2; X1;; IV; IV
     Route: 042
  6. OXALIPLATIN [Suspect]
     Indication: ADENOCARCINOMA
     Dosage: 85 MG/M** 2; X1;; IV; IV
     Route: 042
  7. OXALIPLATIN [Suspect]
     Indication: ADENOCARCINOMA
     Dosage: 85 MG/M** 2; X1;; IV; IV
     Route: 042
  8. LEUCOVORIN CALCIUM [Suspect]
     Indication: ADENOCARCINOMA
     Dosage: 400 MG/M** 2;X1; IV;  20 MG/M** 2; X1; IV;  IV
     Route: 042
  9. LEUCOVORIN CALCIUM [Suspect]
     Indication: ADENOCARCINOMA
     Dosage: 400 MG/M** 2;X1; IV;  20 MG/M** 2; X1; IV;  IV
     Route: 042
  10. LEUCOVORIN CALCIUM [Suspect]
     Indication: ADENOCARCINOMA
     Dosage: 400 MG/M** 2;X1; IV;  20 MG/M** 2; X1; IV;  IV
     Route: 042
  11. LEUCOVORIN CALCIUM [Suspect]
     Indication: ADENOCARCINOMA
     Dosage: 400 MG/M** 2;X1; IV;  20 MG/M** 2; X1; IV;  IV
     Route: 042
  12. IRINOTECAN HCL [Suspect]
     Indication: ADENOCARCINOMA
     Dosage: 80 MG/M** 2; QW; IV; 180 MG/M** 2; X1; IV;
     Route: 042
  13. IRINOTECAN HCL [Suspect]
     Indication: ADENOCARCINOMA
     Dosage: 80 MG/M** 2; QW; IV; 180 MG/M** 2; X1; IV;
     Route: 042
  14. CETUXIMAB [Suspect]
     Indication: ADENOCARCINOMA
     Dosage: 400 MG/M** 2; X1; IV; 250 MG/M**2; QOW; IV
  15. BEVACIZUMAB [Suspect]
     Indication: ADENOCARCINOMA
  16. GEMCITABINE HCL [Suspect]
     Indication: ADENOCARCINOMA
     Dosage: ; IV
     Route: 042

REACTIONS (11)
  - COLON CANCER METASTATIC [None]
  - CONJUNCTIVITIS [None]
  - DIARRHOEA [None]
  - GINGIVAL BLEEDING [None]
  - MALIGNANT NEOPLASM PROGRESSION [None]
  - METASTASES TO CENTRAL NERVOUS SYSTEM [None]
  - NAUSEA [None]
  - NEUROPATHY PERIPHERAL [None]
  - PALMAR-PLANTAR ERYTHRODYSAESTHESIA SYNDROME [None]
  - PARAESTHESIA [None]
  - VOMITING [None]
